FAERS Safety Report 18365787 (Version 1)
Quarter: 2020Q4

REPORT INFORMATION
  Report Type: Spontaneous
  Country: US (occurrence: US)
  Receive Date: 20201009
  Receipt Date: 20201009
  Transmission Date: 20210114
  Serious: No
  Sender: FDA-Public Use
  Company Number: US-EISAI MEDICAL RESEARCH-EC-2020-081324

PATIENT
  Age: 61 Year
  Sex: Female

DRUGS (2)
  1. DAYVIGO [Suspect]
     Active Substance: LEMBOREXANT
     Route: 048
     Dates: start: 202009
  2. DAYVIGO [Suspect]
     Active Substance: LEMBOREXANT
     Indication: SLEEP DISORDER
     Route: 048
     Dates: start: 20200922, end: 202009

REACTIONS (3)
  - Sleep-related eating disorder [Recovered/Resolved]
  - Headache [Not Recovered/Not Resolved]
  - Insomnia [Recovered/Resolved]

NARRATIVE: CASE EVENT DATE: 202009
